FAERS Safety Report 11617363 (Version 1)
Quarter: 2015Q4

REPORT INFORMATION
  Report Type: Spontaneous
  Country: US (occurrence: US)
  Receive Date: 20151009
  Receipt Date: 20151009
  Transmission Date: 20160304
  Serious: Yes (Other)
  Sender: FDA-Public Use
  Company Number: PHEH2015US019489

PATIENT
  Sex: Male

DRUGS (2)
  1. FORADIL [Suspect]
     Active Substance: FORMOTEROL FUMARATE
     Indication: PRODUCT USED FOR UNKNOWN INDICATION
     Route: 065
     Dates: start: 2015
  2. FORADIL [Suspect]
     Active Substance: FORMOTEROL FUMARATE
     Dosage: (ACCIDENTALLY SWALLOWED THE FORADIL)
     Route: 048
     Dates: start: 20150927

REACTIONS (3)
  - Panic reaction [Not Recovered/Not Resolved]
  - Fear of death [Not Recovered/Not Resolved]
  - Incorrect route of drug administration [Unknown]

NARRATIVE: CASE EVENT DATE: 20150927
